FAERS Safety Report 9964406 (Version 1)
Quarter: 2014Q1

REPORT INFORMATION
  Report Type: Report from Study
  Country: ES (occurrence: ES)
  Receive Date: 20140305
  Receipt Date: 20140305
  Transmission Date: 20141002
  Serious: Yes (Other)
  Sender: FDA-Public Use
  Company Number: ES-GLAXOSMITHKLINE-Z0021207B

PATIENT
  Age: 78 Year
  Sex: Male
  Weight: 71.6 kg

DRUGS (2)
  1. DABRAFENIB [Suspect]
     Indication: MALIGNANT MELANOMA
     Dosage: 150MG TWICE PER DAY
     Route: 048
     Dates: start: 20121030
  2. PLACEBO [Suspect]
     Indication: MALIGNANT MELANOMA
     Route: 048
     Dates: start: 20121030

REACTIONS (1)
  - Basal cell carcinoma [Recovered/Resolved]
